FAERS Safety Report 7295378-8 (Version None)
Quarter: 2011Q1

REPORT INFORMATION
  Report Type: 
  Country: None (occurrence: None)
  Receive Date: 20110216
  Receipt Date: 20110128
  Transmission Date: 20110831
  Serious: No
  Sender: FDA-Public Use
  Company Number: US-ABBOTT-11P-163-0701101-00

PATIENT
  Sex: Male
  Weight: 49.94 kg

DRUGS (2)
  1. SIMCOR [Suspect]
     Indication: HIGH DENSITY LIPOPROTEIN DECREASED
     Dosage: 1000/? MG, DAILY
  2. ASPIRIN [Concomitant]
     Indication: PRODUCT USED FOR UNKNOWN INDICATION
     Dosage: DAILY AT BEDTIME

REACTIONS (5)
  - PRURITUS [None]
  - FATIGUE [None]
  - SKIN BURNING SENSATION [None]
  - BODY TEMPERATURE [None]
  - PYREXIA [None]
